FAERS Safety Report 6411864-4 (Version None)
Quarter: 2009Q4

REPORT INFORMATION
  Report Type: 
  Country: None (occurrence: None)
  Receive Date: 20091020
  Receipt Date: 20091007
  Transmission Date: 20100525
  Serious: Yes (Hospitalization)
  Sender: FDA-Public Use
  Company Number: 2009AC000167

PATIENT
  Age: 69 Year
  Sex: Female

DRUGS (14)
  1. DIGOXIN [Suspect]
     Dosage: 0.125 MG; BID; PO
     Route: 048
     Dates: start: 20050128
  2. INSULIN [Concomitant]
  3. LOTENSIN [Concomitant]
  4. NORVASC [Concomitant]
  5. ASPIRIN [Concomitant]
  6. LASIX [Concomitant]
  7. CLONIDINE [Concomitant]
  8. PRANDIN [Concomitant]
  9. AMARYL [Concomitant]
  10. ACTOS [Concomitant]
  11. COREG [Concomitant]
  12. CRESTOR [Concomitant]
  13. HYDRALAZINE HCL [Concomitant]
  14. METFORMIN HCL [Concomitant]

REACTIONS (15)
  - ANXIETY [None]
  - BLOOD PRESSURE INADEQUATELY CONTROLLED [None]
  - CELLULITIS [None]
  - COUGH [None]
  - DIABETIC NEUROPATHY [None]
  - DIASTOLIC DYSFUNCTION [None]
  - DYSPNOEA [None]
  - DYSPNOEA EXERTIONAL [None]
  - ECONOMIC PROBLEM [None]
  - ESSENTIAL HYPERTENSION [None]
  - ILL-DEFINED DISORDER [None]
  - MULTIPLE INJURIES [None]
  - MUSCLE SPASMS [None]
  - PAIN [None]
  - WEIGHT INCREASED [None]
